FAERS Safety Report 7823703-5 (Version None)
Quarter: 2011Q4

REPORT INFORMATION
  Report Type: 
  Country: None (occurrence: None)
  Receive Date: 20111019
  Receipt Date: 20111010
  Transmission Date: 20120403
  Serious: Yes (Death, Hospitalization)
  Sender: FDA-Public Use
  Company Number: US-BAYER-2010-005819

PATIENT
  Age: 21 Year
  Sex: Female
  Weight: 86.621 kg

DRUGS (3)
  1. TYLENOL-500 [Concomitant]
  2. YASMIN [Suspect]
     Dosage: UNK
     Dates: start: 20080101
  3. IBUPROFEN (ADVIL) [Concomitant]

REACTIONS (2)
  - PAIN [None]
  - THROMBOSIS [None]
